FAERS Safety Report 25455353 (Version 1)
Quarter: 2025Q2

REPORT INFORMATION
  Report Type: Spontaneous
  Country: US (occurrence: US)
  Receive Date: 20250619
  Receipt Date: 20250619
  Transmission Date: 20250717
  Serious: No
  Sender: ELI LILLY AND COMPANY
  Company Number: US-ELI_LILLY_AND_COMPANY-US202506014588

PATIENT
  Age: 56 Year
  Sex: Male

DRUGS (5)
  1. ZEPBOUND [Suspect]
     Active Substance: TIRZEPATIDE
     Indication: Weight control
     Route: 065
     Dates: start: 20250501
  2. PROZAC [Concomitant]
     Active Substance: FLUOXETINE HYDROCHLORIDE
     Indication: Depression
     Dates: start: 20090116
  3. KLONOPIN [Concomitant]
     Active Substance: CLONAZEPAM
     Indication: Anxiety
     Dates: start: 20240102
  4. PEPCID [ALUMINIUM HYDROXIDE GEL, DRIED;MAGNES [Concomitant]
     Indication: Gastrooesophageal reflux disease
     Dates: start: 20250312
  5. ZYRTEC [Concomitant]
     Active Substance: CETIRIZINE HYDROCHLORIDE
     Indication: Seasonal allergy
     Dates: start: 20250110

REACTIONS (6)
  - Brain fog [Not Recovered/Not Resolved]
  - Gastric dilatation [Not Recovered/Not Resolved]
  - Fatigue [Not Recovered/Not Resolved]
  - Injection site warmth [Not Recovered/Not Resolved]
  - Injection site pruritus [Not Recovered/Not Resolved]
  - Constipation [Not Recovered/Not Resolved]

NARRATIVE: CASE EVENT DATE: 20250505
